FAERS Safety Report 5311355-8 (Version None)
Quarter: 2007Q2

REPORT INFORMATION
  Report Type: 
  Country: None (occurrence: None)
  Receive Date: 20070430
  Receipt Date: 20070419
  Transmission Date: 20071010
  Serious: Yes (Other)
  Sender: FDA-Public Use
  Company Number: PHEH2007US06033

PATIENT
  Sex: Female

DRUGS (1)
  1. ZOMETA [Suspect]
     Dates: start: 20050101, end: 20070101

REACTIONS (3)
  - FALL [None]
  - INJURY [None]
  - OSTEONECROSIS [None]
